FAERS Safety Report 10041399 (Version 2)
Quarter: 2014Q1

REPORT INFORMATION
  Report Type: Report from Study
  Country: JP (occurrence: JP)
  Receive Date: 20140327
  Receipt Date: 20140327
  Transmission Date: 20141002
  Serious: Yes (Hospitalization)
  Sender: FDA-Public Use
  Company Number: JP-AMGEN-JPNCT2013045024

PATIENT
  Age: 68 Year
  Sex: Female
  Weight: 35 kg

DRUGS (31)
  1. DENOSUMAB [Suspect]
     Indication: METASTASES TO BONE
     Dosage: 120 MG/2012/11/19, 2012/12/20, 2013/01/17, 2013/02/26, 2013/03/26
     Route: 058
     Dates: start: 20121119
  2. PEMETREXED [Concomitant]
     Indication: PRODUCT USED FOR UNKNOWN INDICATION
     Dosage: UNKNOWN
     Route: 065
     Dates: start: 20130226, end: 20130226
  3. OXINORM [Concomitant]
     Indication: PRODUCT USED FOR UNKNOWN INDICATION
     Dosage: UNK
     Route: 048
     Dates: start: 20130124, end: 20130130
  4. LOXONIN [Concomitant]
     Dosage: UNK
     Route: 048
     Dates: end: 20130407
  5. EDIROL [Concomitant]
     Dosage: UNK
     Route: 048
     Dates: start: 20121119, end: 20130119
  6. CALCIUM LACTATE [Concomitant]
     Dosage: UNK
     Route: 048
     Dates: start: 20121119, end: 20130119
  7. IRESSA [Concomitant]
     Dosage: UNK
     Route: 065
     Dates: start: 20120723, end: 20130119
  8. MUCOSTA [Concomitant]
     Dosage: UNK
     Route: 048
     Dates: end: 20130407
  9. BORRAZA-G [Concomitant]
     Dosage: UNK
     Route: 050
     Dates: end: 20130410
  10. MAGLAX [Concomitant]
     Dosage: UNK
     Route: 048
     Dates: end: 20130407
  11. BIOFERMIN [Concomitant]
     Dosage: UNK
     Route: 048
     Dates: end: 20130407
  12. URSO [Concomitant]
     Dosage: UNK
     Route: 048
     Dates: end: 20130407
  13. PASTARON [Concomitant]
     Dosage: PROPER DOSE
     Route: 050
     Dates: start: 20121129, end: 20130410
  14. KIPRES [Concomitant]
     Dosage: 10MG/DAY
     Route: 048
     Dates: end: 20130407
  15. MAGTECT [Concomitant]
     Dosage: UNK
     Route: 048
     Dates: start: 20130330, end: 20130407
  16. FUNGIZONE [Concomitant]
     Dosage: UNK
     Route: 050
     Dates: end: 20130407
  17. OMEPRAL [Concomitant]
     Dosage: UNK
     Route: 042
     Dates: start: 20130405, end: 20130410
  18. DEXART [Concomitant]
     Dosage: UNK
     Route: 042
     Dates: start: 20130205, end: 20130420
  19. MOHRUS [Concomitant]
     Dosage: 1DF/DAY
     Route: 050
     Dates: end: 20130411
  20. TRAMADOL [Concomitant]
     Dosage: 100MG/DAY
     Route: 048
     Dates: start: 20130117, end: 20130407
  21. DEPAS [Concomitant]
     Dosage: 0.5MG/DAY
     Route: 048
     Dates: end: 20130407
  22. OXYCONTIN [Concomitant]
     Dosage: 10MG/DAY
     Route: 048
     Dates: start: 20130125, end: 20130410
  23. PANVITAN [Concomitant]
     Dosage: UNK
     Route: 048
     Dates: start: 20130128, end: 20130407
  24. VITAMIN B12 [Concomitant]
     Dosage: UNK
     Route: 030
     Dates: start: 20130128, end: 20130407
  25. CALONAL [Concomitant]
     Dosage: 1200MG/DAY
     Route: 048
     Dates: start: 20130205, end: 20130407
  26. GRANISETRON [Concomitant]
     Dosage: UNK UNK, UNK
     Route: 042
     Dates: start: 20130205, end: 20130319
  27. MORPHINE HYDROCHLORIDE [Concomitant]
     Dosage: 10MG/DAY
     Route: 042
     Dates: start: 20130409, end: 20130411
  28. ATARAX-P [Concomitant]
     Dosage: UNK
     Route: 042
     Dates: start: 20130409, end: 20130409
  29. SAXIZON [Concomitant]
     Route: 065
     Dates: start: 20130328, end: 20130410
  30. BFLUID [Concomitant]
     Dosage: 500ML/DAY
     Route: 042
     Dates: start: 20130321, end: 20130327
  31. SOLYUGEN G [Concomitant]
     Route: 042
     Dates: start: 20130320, end: 20130326

REACTIONS (11)
  - Platelet count decreased [Not Recovered/Not Resolved]
  - Disseminated intravascular coagulation [Not Recovered/Not Resolved]
  - Pyrexia [Recovered/Resolved]
  - Pyrexia [Recovered/Resolved]
  - Pyrexia [Not Recovered/Not Resolved]
  - Blood albumin decreased [Not Recovered/Not Resolved]
  - Back pain [Not Recovered/Not Resolved]
  - Epistaxis [Recovered/Resolved]
  - Nausea [Recovered/Resolved]
  - Oedema peripheral [Not Recovered/Not Resolved]
  - Blood urea increased [Not Recovered/Not Resolved]
